FAERS Safety Report 24250703 (Version 1)
Quarter: 2024Q3

REPORT INFORMATION
  Report Type: Spontaneous
  Country: US (occurrence: US)
  Receive Date: 20240826
  Receipt Date: 20240826
  Transmission Date: 20241016
  Serious: No
  Sender: MEDEXUS PHARMA
  Company Number: US-MEDEXUS PHARMA, INC.-2023MED00458

PATIENT
  Sex: Female

DRUGS (4)
  1. RASUVO [Suspect]
     Active Substance: METHOTREXATE SODIUM
     Indication: Rheumatoid arthritis
     Dosage: 20 MG, 1X/WEEK IN THE THIGH ON THURSDAY
  2. THYROID [Concomitant]
     Active Substance: LEVOTHYROXINE\LIOTHYRONINE
  3. PROGESTOGENS NOS [Concomitant]
  4. ENBREL [Concomitant]
     Active Substance: BENZYL ALCOHOL\ETANERCEPT

REACTIONS (6)
  - Pain [Not Recovered/Not Resolved]
  - Exposure via skin contact [Not Recovered/Not Resolved]
  - Product dose omission issue [Not Recovered/Not Resolved]
  - Device malfunction [Not Recovered/Not Resolved]
  - Device defective [Not Recovered/Not Resolved]
  - Device mechanical issue [Not Recovered/Not Resolved]
